FAERS Safety Report 9677195 (Version 1)
Quarter: 2013Q4

REPORT INFORMATION
  Report Type: Spontaneous
  Country: US (occurrence: US)
  Receive Date: 20131108
  Receipt Date: 20131108
  Transmission Date: 20140711
  Serious: Yes (Hospitalization)
  Sender: FDA-Public Use
  Company Number: US-009507513-1311USA002017

PATIENT
  Sex: Male

DRUGS (1)
  1. PROSCAR [Suspect]
     Dosage: UNK
     Route: 048

REACTIONS (2)
  - Adverse event [Not Recovered/Not Resolved]
  - Gastrointestinal tube insertion [Not Recovered/Not Resolved]
